FAERS Safety Report 6655693-5 (Version None)
Quarter: 2010Q1

REPORT INFORMATION
  Report Type: 
  Country: None (occurrence: None)
  Receive Date: 20100329
  Receipt Date: 20100324
  Transmission Date: 20100710
  Serious: Yes (Death, Hospitalization, Other)
  Sender: FDA-Public Use
  Company Number: GR-CELGENEUS-066-C5013-09090141

PATIENT
  Sex: Female

DRUGS (6)
  1. CC-5013\PLACEBO [Suspect]
     Indication: MULTIPLE MYELOMA
     Route: 048
     Dates: start: 20080813, end: 20090821
  2. CC-5013 [Suspect]
     Indication: MULTIPLE MYELOMA
     Route: 048
  3. MELPHALAN HYDROCHLORIDE [Suspect]
     Indication: MULTIPLE MYELOMA
     Route: 065
     Dates: start: 20080813, end: 20090428
  4. PREDNISONE [Suspect]
     Indication: MULTIPLE MYELOMA
     Route: 065
     Dates: start: 20080813, end: 20090428
  5. BORTEZOMIB [Concomitant]
     Indication: MULTIPLE MYELOMA
     Route: 065
  6. DEXAMETHASONE [Concomitant]
     Indication: MULTIPLE MYELOMA
     Route: 065

REACTIONS (2)
  - ATRIAL FIBRILLATION [None]
  - DISEASE PROGRESSION [None]
